FAERS Safety Report 14816357 (Version 1)
Quarter: 2018Q2

REPORT INFORMATION
  Report Type: Spontaneous
  Country: US (occurrence: US)
  Receive Date: 20180426
  Receipt Date: 20180426
  Transmission Date: 20180711
  Serious: Yes (Other)
  Sender: FDA-Public Use
  Company Number: US-SHIRE-US201815311

PATIENT

DRUGS (2)
  1. LIALDA [Suspect]
     Active Substance: MESALAMINE
     Indication: COLITIS
     Route: 065
  2. PENTASA [Suspect]
     Active Substance: MESALAMINE
     Indication: COLITIS
     Route: 065

REACTIONS (5)
  - Gastrooesophageal reflux disease [Unknown]
  - Inability to afford medication [Unknown]
  - Colitis [Unknown]
  - Haematochezia [Unknown]
  - Gastric disorder [Unknown]
